FAERS Safety Report 18224382 (Version 2)
Quarter: 2021Q2

REPORT INFORMATION
  Report Type: Spontaneous
  Country: US (occurrence: US)
  Receive Date: 20200902
  Receipt Date: 20210429
  Transmission Date: 20210717
  Serious: Yes (Disabling, Other)
  Sender: FDA-Public Use
  Company Number: US-PURDUE-USA-2020-0164261

PATIENT
  Sex: Male

DRUGS (17)
  1. GABAPENTIN. [Concomitant]
     Active Substance: GABAPENTIN
     Indication: PAIN
     Dosage: 300 MG, TID
     Route: 048
  2. MELOXICAM. [Concomitant]
     Active Substance: MELOXICAM
     Indication: PRODUCT USED FOR UNKNOWN INDICATION
     Dosage: 15 MG, UNK
     Route: 048
  3. OXYCODONE/ ACETAMINOPHEN TABLETS [Suspect]
     Active Substance: ACETAMINOPHEN\OXYCODONE HYDROCHLORIDE
     Indication: PAIN
     Dosage: 1 DF (10/325), UNK
     Route: 048
  4. OXYCODONE HYDROCHLORIDE (SIMILAR TO NDA 22?272) [Suspect]
     Active Substance: OXYCODONE HYDROCHLORIDE
     Indication: PAIN
     Dosage: UNK
     Route: 048
  5. CARVEDILOL. [Concomitant]
     Active Substance: CARVEDILOL
     Indication: PRODUCT USED FOR UNKNOWN INDICATION
     Dosage: UNK
     Route: 048
  6. DICYCLOMINE                        /00068601/ [Concomitant]
     Active Substance: DICYCLOMINE HYDROCHLORIDE
     Indication: PRODUCT USED FOR UNKNOWN INDICATION
     Dosage: UNK
     Route: 065
  7. NORCO [Suspect]
     Active Substance: ACETAMINOPHEN\HYDROCODONE BITARTRATE
     Dosage: 10?325 MG, Q12H PRN
     Route: 048
  8. LOSARTAN POTASSIUM AND HYDROCHLOROTHIAZIDE [Concomitant]
     Active Substance: HYDROCHLOROTHIAZIDE\LOSARTAN POTASSIUM
     Indication: PRODUCT USED FOR UNKNOWN INDICATION
     Dosage: 10?12.5 MG
     Route: 048
  9. NORCO [Suspect]
     Active Substance: ACETAMINOPHEN\HYDROCODONE BITARTRATE
     Dosage: 10?365
     Route: 048
  10. LOSARTAN. [Concomitant]
     Active Substance: LOSARTAN
     Indication: PRODUCT USED FOR UNKNOWN INDICATION
     Dosage: UNK
     Route: 065
  11. ATARAX [Concomitant]
     Active Substance: HYDROXYZINE HYDROCHLORIDE
     Indication: PRODUCT USED FOR UNKNOWN INDICATION
     Dosage: 25 MG, BID PRN
     Route: 065
  12. OXYCONTIN [Suspect]
     Active Substance: OXYCODONE HYDROCHLORIDE
     Indication: PAIN
     Dosage: UNK
     Route: 048
  13. MORPHINE SULFATE (SIMILAR TO NDA 19?516) [Suspect]
     Active Substance: MORPHINE SULFATE
     Indication: PAIN
     Dosage: UNK
     Route: 048
  14. MOBIC [Concomitant]
     Active Substance: MELOXICAM
     Indication: PRODUCT USED FOR UNKNOWN INDICATION
     Dosage: 15 MG, QD PRN
     Route: 065
  15. HYDROCODONE BITARTRATE AND ACETAMINOPHEN [Suspect]
     Active Substance: ACETAMINOPHEN\HYDROCODONE BITARTRATE
     Indication: PAIN
     Dosage: 10?325 MG, Q8H PRN
     Route: 048
  16. NORCO [Suspect]
     Active Substance: ACETAMINOPHEN\HYDROCODONE BITARTRATE
     Indication: PAIN
     Dosage: 10?325, TID
     Route: 048
     Dates: start: 2016
  17. NORCO [Suspect]
     Active Substance: ACETAMINOPHEN\HYDROCODONE BITARTRATE
     Dosage: 10?325 MG, Q8H PRN
     Route: 048

REACTIONS (50)
  - Tinnitus [Unknown]
  - Dyspnoea [Unknown]
  - Agitation [Unknown]
  - Toxicity to various agents [Unknown]
  - Hypersomnia [Unknown]
  - Heart rate increased [Unknown]
  - Miosis [Unknown]
  - Pain [Unknown]
  - Insomnia [Unknown]
  - Drug withdrawal syndrome [Unknown]
  - Joint stiffness [Unknown]
  - Sensory disturbance [Unknown]
  - Hyporesponsive to stimuli [Unknown]
  - Sleep apnoea syndrome [Unknown]
  - Abdominal pain [Unknown]
  - Tremor [Unknown]
  - Physical disability [Unknown]
  - Erectile dysfunction [Unknown]
  - Injury [Unknown]
  - Emotional distress [Unknown]
  - Social avoidant behaviour [Unknown]
  - Hypertension [Unknown]
  - Wheezing [Unknown]
  - Arthralgia [Unknown]
  - Headache [Unknown]
  - Constipation [Unknown]
  - Deafness [Unknown]
  - Vision blurred [Unknown]
  - Mydriasis [Unknown]
  - Vertigo [Unknown]
  - Hypoaesthesia [Unknown]
  - Euphoric mood [Unknown]
  - Diarrhoea [Unknown]
  - Somnolence [Unknown]
  - Anxiety [Unknown]
  - Joint swelling [Unknown]
  - Obesity [Unknown]
  - Neck pain [Unknown]
  - Hyperhidrosis [Unknown]
  - Carpal tunnel syndrome [Unknown]
  - General physical health deterioration [Unknown]
  - Sexual dysfunction [Unknown]
  - Fatigue [Unknown]
  - Dizziness [Unknown]
  - Depression [Unknown]
  - Loss of consciousness [Unknown]
  - Drug dependence [Unknown]
  - Paraesthesia [Unknown]
  - Confusional state [Unknown]
  - Nausea [Unknown]
